FAERS Safety Report 6007898-4 (Version None)
Quarter: 2008Q4

REPORT INFORMATION
  Report Type: 
  Country: None (occurrence: None)
  Receive Date: 20081217
  Receipt Date: 20080710
  Transmission Date: 20090506
  Serious: No
  Sender: FDA-Public Use
  Company Number: US-ASTRAZENECA-2008UW13869

PATIENT
  Age: 77 Year
  Sex: Female
  Weight: 62.6 kg

DRUGS (8)
  1. CRESTOR [Suspect]
     Indication: BLOOD CHOLESTEROL INCREASED
     Route: 048
     Dates: start: 20080401
  2. PLAVIX [Concomitant]
  3. SYNTHROID [Concomitant]
  4. COREG [Concomitant]
  5. ASPIRIN [Concomitant]
  6. BUSPAR [Concomitant]
  7. VITAMINS [Concomitant]
  8. FISH OIL [Concomitant]

REACTIONS (3)
  - GAIT DISTURBANCE [None]
  - PAIN IN EXTREMITY [None]
  - WEIGHT INCREASED [None]
